FAERS Safety Report 21058756 (Version 2)
Quarter: 2022Q3

REPORT INFORMATION
  Report Type: Report from Study
  Country: US (occurrence: None)
  Receive Date: 20220708
  Receipt Date: 20220712
  Transmission Date: 20221027
  Serious: Yes (Death, Other)
  Sender: FDA-Public Use
  Company Number: 2022A246283

PATIENT
  Sex: Male

DRUGS (14)
  1. FARXIGA [Suspect]
     Active Substance: DAPAGLIFLOZIN PROPANEDIOL
     Dosage: 1 TABLET, ONCE A DAY
     Route: 048
  2. VITAMINS [Concomitant]
     Active Substance: VITAMINS
     Dosage: 1 TABLET, ONCE A DAY
     Route: 048
  3. ELIQUIS [Concomitant]
     Active Substance: APIXABAN
     Dosage: 1 TABLET, TWICE A DAY
     Route: 048
  4. VITAMIN D3 [Concomitant]
     Active Substance: CHOLECALCIFEROL
     Dosage: 1 TABLET, ONCE A DAY
     Route: 048
  5. ASPIRIN [Concomitant]
     Active Substance: ASPIRIN
     Dosage: 1 TABLET, ONCE A DAY
     Route: 048
  6. ATORVASTATIN [Concomitant]
     Active Substance: ATORVASTATIN
     Dosage: 1 TABLET AT BEDTIME
     Route: 048
  7. CARVEDILOL [Concomitant]
     Active Substance: CARVEDILOL
     Dosage: 1 TABLET, TWICE A DAY
     Route: 048
  8. TAMSULOSIN [Concomitant]
     Active Substance: TAMSULOSIN
     Route: 048
  9. LOSARTAN [Concomitant]
     Active Substance: LOSARTAN
     Dosage: 1 TABLET, ONCE A DAY
     Route: 048
  10. SPIRONOLACTONE [Concomitant]
     Active Substance: SPIRONOLACTONE
     Dosage: 1 TABLET, ONCE A DAY
     Route: 048
  11. MEMANTINE [Concomitant]
     Active Substance: MEMANTINE
     Dosage: 1 TABLET, TWICE A DAY, 1 TABLET IN THE MORNING AND 2 TABLETS AT NIGHT
     Route: 048
  12. COVID-19 [Concomitant]
     Indication: Immunisation
     Dates: start: 20210225
  13. COVID-19 [Concomitant]
     Indication: Immunisation
     Dates: start: 20210401
  14. COVID-19 [Concomitant]
     Indication: Immunisation
     Dates: start: 20220302

REACTIONS (29)
  - Death [Fatal]
  - Hypertensive heart disease [Unknown]
  - Chronic kidney disease [Unknown]
  - Diabetes mellitus [Unknown]
  - Atrial fibrillation [Unknown]
  - Atrial flutter [Unknown]
  - Chronic left ventricular failure [Unknown]
  - Hypokalaemia [Unknown]
  - Fall [Unknown]
  - Essential hypertension [Unknown]
  - Hypotension [Unknown]
  - Type 2 diabetes mellitus [Unknown]
  - Hyperlipidaemia [Unknown]
  - Obstructive sleep apnoea syndrome [Unknown]
  - Supraventricular tachycardia [Unknown]
  - Cardiac failure congestive [Unknown]
  - Vitamin D deficiency [Unknown]
  - Aortic valve stenosis [Unknown]
  - Oedema peripheral [Unknown]
  - Cerebral arteriosclerosis [Unknown]
  - Dementia [Unknown]
  - Muscular weakness [Unknown]
  - Benign prostatic hyperplasia [Unknown]
  - Urinary incontinence [Unknown]
  - Gait disturbance [Unknown]
  - Coagulation factor deficiency [Unknown]
  - Thyroid disorder [Unknown]
  - Obesity [Unknown]
  - Body mass index [Unknown]
